FAERS Safety Report 17395752 (Version 1)
Quarter: 2020Q1

REPORT INFORMATION
  Report Type: Spontaneous
  Country: US (occurrence: US)
  Receive Date: 20200206
  Receipt Date: 20200206
  Transmission Date: 20200409
  Serious: Yes (Life-Threatening, Hospitalization, Disabling, Other)
  Sender: FDA-Public Use
  Company Number: None

PATIENT
  Age: 47 Year
  Sex: Male
  Weight: 90 kg

DRUGS (1)
  1. TENECTEPLASE [Suspect]
     Active Substance: TENECTEPLASE
     Indication: CEREBROVASCULAR ACCIDENT
     Dates: start: 20191216, end: 20191216

REACTIONS (4)
  - Unresponsive to stimuli [None]
  - Cerebral haemorrhage [None]
  - Wrong product administered [None]
  - Hepatic haemorrhage [None]

NARRATIVE: CASE EVENT DATE: 20191216
